FAERS Safety Report 25248432 (Version 1)
Quarter: 2025Q2

REPORT INFORMATION
  Report Type: Spontaneous
  Country: US (occurrence: US)
  Receive Date: 20250429
  Receipt Date: 20250429
  Transmission Date: 20250717
  Serious: No
  Sender: TARO
  Company Number: US-TARO PHARMACEUTICALS USA INC.-2024TAR00514

PATIENT

DRUGS (1)
  1. FLUOROURACIL [Suspect]
     Active Substance: FLUOROURACIL
     Indication: Skin cancer
     Route: 061
     Dates: start: 20240310, end: 20240421

REACTIONS (8)
  - Gingival pain [Not Recovered/Not Resolved]
  - Toothache [Not Recovered/Not Resolved]
  - Arthralgia [Not Recovered/Not Resolved]
  - Condition aggravated [Not Recovered/Not Resolved]
  - Application site haemorrhage [Not Recovered/Not Resolved]
  - Skin discolouration [Not Recovered/Not Resolved]
  - Application site inflammation [Not Recovered/Not Resolved]
  - Product administration error [Unknown]
